FAERS Safety Report 8075496-7 (Version None)
Quarter: 2012Q1

REPORT INFORMATION
  Report Type: 
  Country: None (occurrence: None)
  Receive Date: 20120120
  Receipt Date: 20120110
  Transmission Date: 20120608
  Serious: Yes (Other)
  Sender: FDA-Public Use
  Company Number: US-2012-10024

PATIENT
  Age: 42 Year
  Sex: Male

DRUGS (6)
  1. ATENOLOL [Concomitant]
  2. AMLODIPINE [Concomitant]
  3. DOXAZOSIN (DOXAZOSIN MESILATE) [Concomitant]
  4. CANDESARTAN (CANDESARTAN CILEXETIL) [Concomitant]
  5. SIMVASTATIN [Concomitant]
  6. OPC-41061 (TOLVAPTAN) TABLET, 30MG MILLIGRAM(S) [Suspect]
     Indication: CONGENITAL CYSTIC KIDNEY DISEASE
     Dosage: 120 MG MILLIGRAM(S), DAILY DOSE, ORAL
     Route: 048
     Dates: start: 20110930

REACTIONS (3)
  - ALANINE AMINOTRANSFERASE INCREASED [None]
  - GAMMA-GLUTAMYLTRANSFERASE INCREASED [None]
  - ASPARTATE AMINOTRANSFERASE INCREASED [None]
